FAERS Safety Report 7821608-7 (Version None)
Quarter: 2011Q4

REPORT INFORMATION
  Report Type: 
  Country: None (occurrence: None)
  Receive Date: 20111018
  Receipt Date: 20110705
  Transmission Date: 20120403
  Serious: No
  Sender: FDA-Public Use
  Company Number: US-ASTRAZENECA-2011SE40074

PATIENT
  Age: 49 Year
  Sex: Female
  Weight: 204 kg

DRUGS (16)
  1. SYMBICORT [Suspect]
     Indication: EMPHYSEMA
     Dosage: 320 MG, 2 PUFFS,BID
     Route: 055
     Dates: start: 20090101, end: 20110601
  2. TRAZODONE HCL [Concomitant]
  3. DILTIAZEM HCL [Concomitant]
  4. NEXIUM [Suspect]
     Indication: GASTROOESOPHAGEAL REFLUX DISEASE
     Route: 048
     Dates: start: 20100101, end: 20110101
  5. NEXIUM [Suspect]
     Indication: DYSPEPSIA
     Route: 048
     Dates: start: 20100101, end: 20110101
  6. SYMBICORT [Suspect]
     Indication: ASTHMA
     Dosage: 320 MG, 2 PUFFS,BID
     Route: 055
     Dates: start: 20090101, end: 20110601
  7. TIZANIDINE HCL [Concomitant]
     Indication: MUSCLE SPASMS
  8. SYMBICORT [Suspect]
     Indication: CHRONIC OBSTRUCTIVE PULMONARY DISEASE
     Dosage: 320 MG, 2 PUFFS,BID
     Route: 055
     Dates: start: 20090101, end: 20110601
  9. SEROQUEL [Suspect]
     Indication: SLEEP DISORDER
     Route: 048
     Dates: start: 20090101
  10. SEROQUEL [Suspect]
     Indication: BIPOLAR DISORDER
     Route: 048
     Dates: start: 20090101
  11. CYCLOBENZAPR [Concomitant]
     Indication: MUSCLE SPASMS
  12. HYDROCHLOROT [Concomitant]
     Indication: BLOOD PRESSURE ABNORMAL
  13. DIGOXIN [Concomitant]
  14. ALPRAZOLAM [Concomitant]
  15. PROPRANOLOL [Concomitant]
     Indication: BLOOD PRESSURE ABNORMAL
  16. VYCODIN [Concomitant]
     Indication: BACK PAIN
     Dosage: TID

REACTIONS (10)
  - OFF LABEL USE [None]
  - BLOOD PRESSURE INADEQUATELY CONTROLLED [None]
  - INCREASED UPPER AIRWAY SECRETION [None]
  - BACK PAIN [None]
  - HEART RATE ABNORMAL [None]
  - ASTHMA [None]
  - INSOMNIA [None]
  - DYSPEPSIA [None]
  - DRUG DOSE OMISSION [None]
  - GASTROOESOPHAGEAL REFLUX DISEASE [None]
